FAERS Safety Report 20665217 (Version 2)
Quarter: 2022Q2

REPORT INFORMATION
  Report Type: Report from Study
  Country: AU (occurrence: AU)
  Receive Date: 20220401
  Receipt Date: 20220429
  Transmission Date: 20220721
  Serious: No
  Sender: FDA-Public Use
  Company Number: AU-NOVARTISPH-NVSC2022AU073886

PATIENT
  Sex: Female

DRUGS (1)
  1. COSENTYX [Suspect]
     Active Substance: SECUKINUMAB
     Indication: Ankylosing spondylitis
     Dosage: 300 MG, QMO
     Route: 058
     Dates: start: 20210215

REACTIONS (6)
  - Fall [Unknown]
  - Foot fracture [Unknown]
  - COVID-19 [Unknown]
  - Influenza like illness [Recovering/Resolving]
  - Erythema [Unknown]
  - Rash pruritic [Unknown]
